FAERS Safety Report 9136007 (Version 1)
Quarter: 2013Q1

REPORT INFORMATION
  Report Type: Spontaneous
  Country: GB (occurrence: None)
  Receive Date: 20130215
  Receipt Date: 20130215
  Transmission Date: 20140127
  Serious: Yes (Death, Hospitalization)
  Sender: FDA-Public Use
  Company Number: STM-2013-00498

PATIENT
  Age: 68 Year
  Sex: Male

DRUGS (13)
  1. 5-FU (FLUOROURACIL) [Suspect]
     Indication: COLORECTAL CANCER METASTATIC
     Route: 040
     Dates: start: 20120928, end: 20120928
  2. AFLIBERCEPT [Suspect]
     Indication: COLORECTAL CANCER METASTATIC
     Dosage: (NOT OTHERWISE SPECIFIED)
     Route: 042
     Dates: start: 20120928, end: 20120928
  3. LEUCOVORIN [Suspect]
     Indication: COLORECTAL CANCER METASTATIC
     Dosage: (NOT OTHERWISE SPECIFIED)
     Route: 042
     Dates: start: 20120928, end: 20120928
  4. IRINOTECAN [Suspect]
     Indication: COLORECTAL CANCER METASTATIC
     Dosage: (NOT OTHERWISE SPECIFIED)
     Route: 042
     Dates: start: 20120928, end: 20120928
  5. PARACETAMOL (PARACETAMOL)(UNKNOWN)(PARACETAMOL) [Concomitant]
  6. ORAMORPH (MORPHINE SULFATE PENTAHYDRATE)(UNKNOWN)(MORPHINE SULFATE PENTAHYDRATE) [Concomitant]
  7. SIMVASTATIN (SIMVASTATIN)(UNKNOWN)(SIMVASTATIN) [Concomitant]
  8. LANSOPRAZOLE(LANSOPRAZOLE)(UNKNOWN)(LANSOPRAZOLE) [Concomitant]
  9. METOCLOPRAMIDE(METOCLOPRAMIDE)(UNKNOWN)(METOCLOPRAMIDE) [Concomitant]
  10. AZITHROMYCIN(AZITHROMYCIN)(UNKNOWN)(AZITHROMYCIN) [Concomitant]
  11. MST(MORPHINE SULFATE) (UNKNOWN) (MORPHINE SULFATE) [Concomitant]
  12. GABAPENTIN(GABAPENTIN)(UNKNOWN)(GABAPENTIN) [Concomitant]
  13. DICLOFENAC(DICLOFENAC)(UNKNOWN)(DICLOFENAC) [Concomitant]

REACTIONS (3)
  - Neutropenic sepsis [None]
  - Diarrhoea [None]
  - Vomiting [None]
